FAERS Safety Report 11173853 (Version 1)
Quarter: 2015Q2

REPORT INFORMATION
  Report Type: Spontaneous
  Country: US (occurrence: None)
  Receive Date: 20150608
  Receipt Date: 20150608
  Transmission Date: 20150821
  Serious: Yes (Other)
  Sender: FDA-Public Use
  Company Number: None

PATIENT
  Age: 16 Year
  Sex: Female
  Weight: 48 kg

DRUGS (1)
  1. INFLIXIMAB [Suspect]
     Active Substance: INFLIXIMAB
     Indication: CHRONIC DISEASE
     Dosage: 200MG Q 8 WEEKS INTRAVENOUS
     Route: 042
     Dates: start: 20120125, end: 20150401

REACTIONS (1)
  - Hodgkin^s disease [None]

NARRATIVE: CASE EVENT DATE: 20150501
